FAERS Safety Report 12860156 (Version 1)
Quarter: 2016Q4

REPORT INFORMATION
  Report Type: Spontaneous
  Country: US (occurrence: US)
  Receive Date: 20161019
  Receipt Date: 20161019
  Transmission Date: 20170207
  Serious: No
  Sender: FDA-Public Use
  Company Number: GXBR2013US002011

PATIENT
  Age: 28 Year
  Sex: Female

DRUGS (2)
  1. PRENATAL VITAMINS [Concomitant]
     Active Substance: VITAMINS
     Dosage: UNK DF, UNK
  2. ENOXAPARIN SODIUM. [Suspect]
     Active Substance: ENOXAPARIN SODIUM
     Dosage: 40 MG, QD
     Route: 058
     Dates: start: 20131029, end: 20131101

REACTIONS (3)
  - Injection site pain [Recovered/Resolved]
  - Maternal exposure during pregnancy [Not Recovered/Not Resolved]
  - Injection site bruising [Recovered/Resolved]

NARRATIVE: CASE EVENT DATE: 20131029
